FAERS Safety Report 7993468-5 (Version None)
Quarter: 2011Q4

REPORT INFORMATION
  Report Type: 
  Country: None (occurrence: None)
  Receive Date: 20111219
  Receipt Date: 20101115
  Transmission Date: 20120403
  Serious: No
  Sender: FDA-Public Use
  Company Number: US-ASTRAZENECA-2010SE54391

PATIENT
  Age: 898 Month
  Sex: Female

DRUGS (4)
  1. CRESTOR [Suspect]
     Indication: HYPERCHOLESTEROLAEMIA
     Route: 048
     Dates: start: 20100601, end: 20101112
  2. CALCIUM [Concomitant]
  3. MULTI-VITAMINS [Concomitant]
  4. VITAMIN D [Concomitant]

REACTIONS (6)
  - SINUSITIS [None]
  - URINE COLOUR ABNORMAL [None]
  - URINARY TRACT INFECTION [None]
  - FAECES DISCOLOURED [None]
  - ALANINE AMINOTRANSFERASE INCREASED [None]
  - EXPOSURE TO TOXIC AGENT [None]
